FAERS Safety Report 5388822-4 (Version None)
Quarter: 2007Q3

REPORT INFORMATION
  Report Type: 
  Country: None (occurrence: None)
  Receive Date: 20070712
  Receipt Date: 20070628
  Transmission Date: 20080115
  Serious: Yes (Hospitalization, Other)
  Sender: FDA-Public Use
  Company Number: 2007S1005540

PATIENT
  Age: 60 Year
  Sex: Male
  Weight: 86.1834 kg

DRUGS (11)
  1. FENTANYL TRANSDERMAL SYSTEM [Suspect]
     Indication: ARTHRITIS
     Dosage: 50 UG/HR; EVERY OTHER DAY; TRANSDERMAL
     Route: 062
     Dates: start: 20050201
  2. FENTANYL TRANSDERMAL SYSTEM [Suspect]
     Indication: PAIN
     Dosage: 50 UG/HR; EVERY OTHER DAY; TRANSDERMAL
     Route: 062
     Dates: start: 20050201
  3. FENTANYL TRANSDERMAL SYSTEM [Suspect]
     Indication: SPINAL COLUMN STENOSIS
     Dosage: 50 UG/HR; EVERY OTHER DAY; TRANSDERMAL
     Route: 062
     Dates: start: 20050201
  4. METHOCARBAMOL (CON.) [Concomitant]
  5. TOPROL XL (CON.) [Concomitant]
  6. HYDROCHLOORTHIAZIDE (CON.) [Concomitant]
  7. MIRAPEX (CON.) [Concomitant]
  8. SIMVASTATIN (CON.) [Concomitant]
  9. OMEPRAZOLE (CON.) [Concomitant]
  10. BAYER EXTRA STRENGTH BACK AND BODY PAIN (CON.) [Concomitant]
  11. LIPITOR (CON.) [Concomitant]

REACTIONS (5)
  - COLD SWEAT [None]
  - DRUG INEFFECTIVE [None]
  - DRUG WITHDRAWAL SYNDROME [None]
  - MEDICAL DEVICE COMPLICATION [None]
  - PHARMACEUTICAL PRODUCT COMPLAINT [None]
